FAERS Safety Report 24616112 (Version 2)
Quarter: 2025Q1

REPORT INFORMATION
  Report Type: Report from Study
  Country: CA (occurrence: CA)
  Receive Date: 20241113
  Receipt Date: 20250113
  Transmission Date: 20250408
  Serious: Yes (Death, Hospitalization, Other)
  Sender: ABBVIE
  Company Number: CA-ABBVIE-5999923

PATIENT
  Age: 74 Year
  Sex: Male

DRUGS (2)
  1. LUPRON [Suspect]
     Active Substance: LEUPROLIDE ACETATE
     Indication: Prostate cancer
     Dosage: FORM STRENGTH: 30 MILLIGRAMS
     Route: 030
     Dates: start: 20180123, end: 20240730
  2. BICALUTAMIDE [Concomitant]
     Active Substance: BICALUTAMIDE
     Indication: Product used for unknown indication
     Dosage: FORM STRENGTH: 50 MILLIGRAMS

REACTIONS (3)
  - Death [Fatal]
  - Metastases to pelvis [Unknown]
  - Pulmonary mass [Unknown]

NARRATIVE: CASE EVENT DATE: 20241205
